FAERS Safety Report 20899544 (Version 3)
Quarter: 2022Q3

REPORT INFORMATION
  Report Type: Other
  Country: US (occurrence: None)
  Receive Date: 20220601
  Receipt Date: 20220715
  Transmission Date: 20221027
  Serious: Yes (Hospitalization)
  Sender: FDA-Public Use
  Company Number: US-ROCHE-3106979

PATIENT
  Sex: Female

DRUGS (6)
  1. XOLAIR [Suspect]
     Active Substance: OMALIZUMAB
     Indication: Bronchitis chronic
     Dosage: INJECT 225MG SUBCUTANEOUSLY EVERY 2 WEEK(S)
     Route: 058
     Dates: start: 20220110
  2. XOLAIR [Suspect]
     Active Substance: OMALIZUMAB
  3. XOLAIR [Suspect]
     Active Substance: OMALIZUMAB
  4. XOLAIR [Suspect]
     Active Substance: OMALIZUMAB
     Dosage: INJECT 225MG SUBCUTANEOUSLY EVERY 2 WEEK(S)
     Route: 058
  5. XOLAIR [Suspect]
     Active Substance: OMALIZUMAB
  6. XOLAIR [Suspect]
     Active Substance: OMALIZUMAB

REACTIONS (4)
  - Pneumonia [Unknown]
  - Respiratory failure [Unknown]
  - Off label use [Unknown]
  - Respiratory failure [Unknown]
